FAERS Safety Report 23580542 (Version 1)
Quarter: 2024Q1

REPORT INFORMATION
  Report Type: Spontaneous
  Country: US (occurrence: None)
  Receive Date: 20240229
  Receipt Date: 20240229
  Transmission Date: 20240410
  Serious: Yes (Hospitalization)
  Sender: FDA-Public Use
  Company Number: None

PATIENT
  Age: 45 Year
  Sex: Female
  Weight: 101.7 kg

DRUGS (1)
  1. ZEPBOUND [Suspect]
     Active Substance: TIRZEPATIDE
     Indication: Weight decreased
     Dosage: ONCE,  WEEKLY SUBCUTANEOUS?
     Route: 058
     Dates: start: 20240222, end: 20240222

REACTIONS (6)
  - Diarrhoea [None]
  - Vomiting [None]
  - Irritable bowel syndrome [None]
  - Dehydration [None]
  - Electrolyte imbalance [None]
  - Metabolic acidosis [None]

NARRATIVE: CASE EVENT DATE: 20240224
